FAERS Safety Report 19624597 (Version 1)
Quarter: 2021Q3

REPORT INFORMATION
  Report Type: Spontaneous
  Country: TN (occurrence: TN)
  Receive Date: 20210729
  Receipt Date: 20210729
  Transmission Date: 20211014
  Serious: Yes (Other)
  Sender: FDA-Public Use
  Company Number: TN-ACCORD-233000

PATIENT
  Age: 78 Year
  Sex: Male

DRUGS (1)
  1. ATROPINE. [Suspect]
     Active Substance: ATROPINE
     Indication: INTESTINAL PSEUDO-OBSTRUCTION

REACTIONS (2)
  - Drug ineffective [Unknown]
  - Bradycardia [Recovered/Resolved]
